FAERS Safety Report 6010244-3 (Version None)
Quarter: 2008Q4

REPORT INFORMATION
  Report Type: 
  Country: None (occurrence: None)
  Receive Date: 20081218
  Receipt Date: 20080213
  Transmission Date: 20090506
  Serious: No
  Sender: FDA-Public Use
  Company Number: A0709394A

PATIENT
  Age: 73 Year
  Sex: Male

DRUGS (1)
  1. FLUTICASONE PROPIONATE [Suspect]
     Dosage: 3SPR THREE TIMES PER DAY
     Route: 045
     Dates: start: 20070101

REACTIONS (1)
  - DRUG INEFFECTIVE [None]
